FAERS Safety Report 8561780-7 (Version None)
Quarter: 2012Q3

REPORT INFORMATION
  Report Type: 
  Country: None (occurrence: None)
  Receive Date: 20120802
  Receipt Date: 20120112
  Transmission Date: 20120928
  Serious: Yes (Other)
  Sender: FDA-Public Use
  Company Number: US-ROCHE-1094874

PATIENT
  Sex: Male

DRUGS (4)
  1. FLUTICASONE PROPIONATE [Concomitant]
     Dosage: 250*2
  2. SINGULAIR [Concomitant]
  3. XOLAIR [Suspect]
     Indication: ASTHMA
     Route: 065
  4. NASONEX [Concomitant]
     Dosage: *2

REACTIONS (9)
  - LACRIMATION INCREASED [None]
  - RASH [None]
  - PROSTATE CANCER [None]
  - CHEST DISCOMFORT [None]
  - DYSPNOEA [None]
  - COUGH [None]
  - EYE PRURITUS [None]
  - URTICARIA [None]
  - SNEEZING [None]
